FAERS Safety Report 11975337 (Version 1)
Quarter: 2016Q1

REPORT INFORMATION
  Report Type: Spontaneous
  Country: US (occurrence: US)
  Receive Date: 20160128
  Receipt Date: 20160128
  Transmission Date: 20160526
  Serious: No
  Sender: FDA-Public Use
  Company Number: US-BIOGEN-2016BI00172874

PATIENT
  Sex: Female

DRUGS (1)
  1. AVONEX [Suspect]
     Active Substance: INTERFERON BETA-1A
     Indication: MULTIPLE SCLEROSIS
     Route: 065
     Dates: start: 20150824

REACTIONS (8)
  - Contusion [Unknown]
  - Gait disturbance [Unknown]
  - Balance disorder [Unknown]
  - Malaise [Unknown]
  - Fall [Unknown]
  - Vomiting [Unknown]
  - Skin exfoliation [Unknown]
  - Bradykinesia [Unknown]
